FAERS Safety Report 6409252-X (Version None)
Quarter: 2009Q4

REPORT INFORMATION
  Report Type: 
  Country: None (occurrence: None)
  Receive Date: 20091019
  Receipt Date: 20091019
  Transmission Date: 20100525
  Serious: Yes (Other)
  Sender: FDA-Public Use
  Company Number: None

PATIENT
  Sex: Female
  Weight: 102.0593 kg

DRUGS (1)
  1. LEVAQUIN [Suspect]
     Indication: CYSTITIS
     Dosage: 1 PER DAY PO
     Route: 048
     Dates: start: 20091015, end: 20091017

REACTIONS (3)
  - FEELING ABNORMAL [None]
  - JOINT SWELLING [None]
  - MYALGIA [None]
